FAERS Safety Report 8000974-6 (Version None)
Quarter: 2011Q4

REPORT INFORMATION
  Report Type: 
  Country: None (occurrence: None)
  Receive Date: 20111222
  Receipt Date: 20110105
  Transmission Date: 20120403
  Serious: No
  Sender: FDA-Public Use
  Company Number: US-GLAXOSMITHKLINE-A0783508A

PATIENT
  Sex: Female

DRUGS (3)
  1. FLUTICASONE PROPIONATE [Suspect]
     Indication: RHINITIS ALLERGIC
     Dosage: 4SPR PER DAY
     Route: 045
     Dates: start: 20090111, end: 20090311
  2. VERAMYST [Suspect]
     Indication: RHINITIS ALLERGIC
     Route: 045
  3. NO CONCURRENT MEDICATION [Concomitant]

REACTIONS (3)
  - RHINORRHOEA [None]
  - DRUG INEFFECTIVE [None]
  - COUGH [None]
